FAERS Safety Report 6737986-6 (Version None)
Quarter: 2010Q2

REPORT INFORMATION
  Report Type: 
  Country: None (occurrence: None)
  Receive Date: 20100524
  Receipt Date: 20100514
  Transmission Date: 20101027
  Serious: Yes (Death)
  Sender: FDA-Public Use
  Company Number: BR-ROCHE-703320

PATIENT
  Age: 22 Year
  Sex: Female

DRUGS (2)
  1. TAMIFLU [Suspect]
     Indication: H1N1 INFLUENZA
     Route: 065
     Dates: start: 20100507
  2. INFLUENZA VIRUS VACCINE [Concomitant]
     Dosage: DRUG NAME: INFLUENZA H1N1 VACCINE.

REACTIONS (4)
  - ACUTE RESPIRATORY FAILURE [None]
  - HYPERTENSION [None]
  - PNEUMONITIS [None]
  - URINARY TRACT INFECTION [None]
